FAERS Safety Report 11129052 (Version 1)
Quarter: 2015Q2

REPORT INFORMATION
  Report Type: Spontaneous
  Country: US (occurrence: US)
  Receive Date: 20150521
  Receipt Date: 20150521
  Transmission Date: 20150821
  Serious: Yes (Other)
  Sender: FDA-Public Use
  Company Number: US-BRACCO-012107

PATIENT
  Age: 65 Year
  Sex: Male

DRUGS (1)
  1. CARDIOGEN-82 [Suspect]
     Active Substance: RUBIDIUM CHLORIDE RB-82
     Indication: POSITRON EMISSION TOMOGRAM
     Dates: start: 20110221, end: 20110221

REACTIONS (3)
  - Exposure to radiation [Unknown]
  - Rash [Unknown]
  - Psychological factor affecting medical condition [Unknown]

NARRATIVE: CASE EVENT DATE: 20110221
